APPROVED DRUG PRODUCT: NORTRIPTYLINE HYDROCHLORIDE
Active Ingredient: NORTRIPTYLINE HYDROCHLORIDE
Strength: EQ 75MG BASE
Dosage Form/Route: CAPSULE;ORAL
Application: A213441 | Product #004
Applicant: ZYDUS LIFESCIENCES GLOBAL FZE
Approved: Feb 24, 2021 | RLD: No | RS: No | Type: DISCN